FAERS Safety Report 7960313-3 (Version None)
Quarter: 2011Q4

REPORT INFORMATION
  Report Type: 
  Country: None (occurrence: None)
  Receive Date: 20111206
  Receipt Date: 20111205
  Transmission Date: 20120403
  Serious: Yes (Death, Other)
  Sender: FDA-Public Use
  Company Number: PHFR2011GB006703

PATIENT
  Sex: Male

DRUGS (11)
  1. SIMVASTATIN [Concomitant]
     Indication: LIPIDS ABNORMAL
     Dosage: 40 MG/DAY
     Route: 048
  2. AMITRIPTYLINE HCL [Concomitant]
     Indication: DEPRESSION
     Dosage: 100 MG/DAY
     Route: 048
  3. CLOZARIL [Suspect]
     Indication: SCHIZOPHRENIA
     Dosage: 200 MG/DAY
     Route: 048
     Dates: start: 20080704
  4. DIAZEPAM [Concomitant]
     Indication: AGITATION
     Dosage: 15 MG, PRN
     Route: 048
  5. OMEPRAZOLE [Concomitant]
     Dosage: 20 MG/DAY
     Route: 048
  6. ASPIRIN [Concomitant]
     Indication: TRANSIENT ISCHAEMIC ATTACK
     Dosage: 75 MG, QD
     Route: 048
  7. LITHIUM CARBONATE [Concomitant]
     Indication: AFFECTIVE DISORDER
     Dosage: 1000 MG, QD
  8. LEVOTHYROXINE SODIUM [Concomitant]
     Indication: HYPOTHYROIDISM
     Dosage: 225 UG, QD
     Route: 048
  9. PROCYCLIDINE HYDROCHLORIDE 2MG TAB [Concomitant]
     Indication: EXTRAPYRAMIDAL DISORDER
     Dosage: 30 MG/DAY
     Route: 048
  10. BISOPROLOL FUMARATE [Concomitant]
     Indication: HYPERTENSION
     Dosage: 2.5 MG/DAY
     Route: 048
  11. SULPIRIDE [Concomitant]
     Indication: PSYCHOTIC DISORDER
     Dosage: 2400 MG/DAY
     Route: 048

REACTIONS (20)
  - EMOTIONAL DISTRESS [None]
  - PANIC DISORDER [None]
  - TRANSIENT ISCHAEMIC ATTACK [None]
  - LUNG DISORDER [None]
  - FALL [None]
  - ABNORMAL BEHAVIOUR [None]
  - PARKINSONIAN GAIT [None]
  - PERSECUTORY DELUSION [None]
  - BODY MASS INDEX INCREASED [None]
  - METABOLIC SYNDROME [None]
  - DYSPNOEA [None]
  - SCHIZOAFFECTIVE DISORDER [None]
  - PARANOIA [None]
  - ANXIETY [None]
  - DEATH [None]
  - HALLUCINATION, AUDITORY [None]
  - CIRCULATORY COLLAPSE [None]
  - PULMONARY EMBOLISM [None]
  - DEEP VEIN THROMBOSIS [None]
  - ELECTROCARDIOGRAM QT PROLONGED [None]
